FAERS Safety Report 7390364-1 (Version None)
Quarter: 2011Q2

REPORT INFORMATION
  Report Type: 
  Country: None (occurrence: None)
  Receive Date: 20110401
  Receipt Date: 20110330
  Transmission Date: 20111010
  Serious: Yes (Other)
  Sender: FDA-Public Use
  Company Number: US-AMGEN-USASP2011016671

PATIENT
  Age: 49 Year
  Sex: Female

DRUGS (3)
  1. PROMACTA [Concomitant]
  2. NPLATE [Suspect]
     Indication: IDIOPATHIC THROMBOCYTOPENIC PURPURA
     Dosage: 8 A?G/KG, UNK
     Dates: start: 20060107, end: 20101020
  3. ESTRADIOL TRANSDERMAL [Concomitant]

REACTIONS (1)
  - THROMBOCYTOPENIA [None]
